FAERS Safety Report 22064522 (Version 1)
Quarter: 2023Q1

REPORT INFORMATION
  Report Type: Spontaneous
  Country: US (occurrence: US)
  Receive Date: 20230306
  Receipt Date: 20230306
  Transmission Date: 20230418
  Serious: No
  Sender: FDA-Public Use
  Company Number: US-PTC THERAPEUTICS INC.-US-2022PTC001294

PATIENT
  Age: 12 Year
  Sex: Male
  Weight: 92.97 kg

DRUGS (5)
  1. EMFLAZA [Suspect]
     Active Substance: DEFLAZACORT
     Indication: Duchenne muscular dystrophy
     Dosage: UNK
     Dates: start: 20170303
  2. LOSARTAN POTASSIUM [Concomitant]
     Active Substance: LOSARTAN POTASSIUM
     Indication: Ventricular dysfunction
     Dosage: UNK
     Dates: start: 20181012
  3. COENZYME Q10 [Concomitant]
     Active Substance: DIETARY SUPPLEMENT\UBIDECARENONE
     Indication: Supplementation therapy
     Dosage: UNK
     Dates: start: 20200115
  4. EXONDYS 51 [Concomitant]
     Active Substance: ETEPLIRSEN
     Indication: Duchenne muscular dystrophy
     Dosage: UNK
     Route: 042
     Dates: start: 20170303
  5. EXONDYS 51 [Concomitant]
     Active Substance: ETEPLIRSEN
     Dosage: 2100 MG, QWK
     Dates: start: 20200115

REACTIONS (3)
  - Obesity [Not Recovered/Not Resolved]
  - Increased appetite [Unknown]
  - Off label use [Unknown]

NARRATIVE: CASE EVENT DATE: 20200601
